FAERS Safety Report 16113514 (Version 1)
Quarter: 2019Q1

REPORT INFORMATION
  Report Type: Spontaneous
  Country: US (occurrence: US)
  Receive Date: 20190325
  Receipt Date: 20190325
  Transmission Date: 20190418
  Serious: No
  Sender: FDA-Public Use
  Company Number: US-ALLERGAN-1840087US

PATIENT
  Sex: Female
  Weight: 56.69 kg

DRUGS (3)
  1. RETINOL [Concomitant]
     Active Substance: RETINOL
     Dosage: UNK
     Route: 065
  2. LATISSE [Suspect]
     Active Substance: BIMATOPROST
     Indication: PRODUCT USED FOR UNKNOWN INDICATION
     Dosage: 2 GTT,QD
     Route: 061
     Dates: start: 20180215
  3. PATIENT USED DIFFERENT FACIAL GELS [Concomitant]
     Dosage: UNK
     Route: 065

REACTIONS (2)
  - Madarosis [Unknown]
  - Intentional dose omission [Unknown]

NARRATIVE: CASE EVENT DATE: 2018
